FAERS Safety Report 23460700 (Version 1)
Quarter: 2024Q1

REPORT INFORMATION
  Report Type: Report from Study
  Country: US (occurrence: US)
  Receive Date: 20240131
  Receipt Date: 20240131
  Transmission Date: 20240409
  Serious: Yes (Other)
  Sender: FDA-Public Use
  Company Number: US-UCBSA-2024004330

PATIENT
  Age: 30 Year
  Sex: Female

DRUGS (1)
  1. CERTOLIZUMAB PEGOL [Suspect]
     Active Substance: CERTOLIZUMAB PEGOL
     Indication: Ankylosing spondylitis
     Dosage: UNK
     Dates: start: 20240119, end: 20240120

REACTIONS (14)
  - Syncope [Recovering/Resolving]
  - Dehydration [Recovering/Resolving]
  - Ocular hyperaemia [Recovering/Resolving]
  - Arthralgia [Recovering/Resolving]
  - Drug hypersensitivity [Recovering/Resolving]
  - Injection site erythema [Recovering/Resolving]
  - Injection site pruritus [Recovering/Resolving]
  - Rash [Recovering/Resolving]
  - Polyuria [Recovering/Resolving]
  - Vomiting [Recovering/Resolving]
  - Lacrimation increased [Recovering/Resolving]
  - Pain in jaw [Recovering/Resolving]
  - Headache [Recovering/Resolving]
  - Maternal exposure during breast feeding [Unknown]

NARRATIVE: CASE EVENT DATE: 20240119
